FAERS Safety Report 17880232 (Version 1)
Quarter: 2020Q2

REPORT INFORMATION
  Report Type: Spontaneous
  Country: US (occurrence: US)
  Receive Date: 20200610
  Receipt Date: 20200610
  Transmission Date: 20200714
  Serious: No
  Sender: FDA-Public Use
  Company Number: None

PATIENT
  Age: 75 Year
  Sex: Male
  Weight: 74 kg

DRUGS (1)
  1. MELATONIN (MELATONIN 5MG CAP/TAB) [Suspect]
     Active Substance: MELATONIN
     Indication: SLEEP DISORDER
     Dates: start: 20181104, end: 20181123

REACTIONS (2)
  - Diarrhoea [None]
  - Abdominal discomfort [None]

NARRATIVE: CASE EVENT DATE: 20181205
